FAERS Safety Report 24262624 (Version 1)
Quarter: 2024Q3

REPORT INFORMATION
  Report Type: Spontaneous
  Country: GB (occurrence: GB)
  Receive Date: 20240829
  Receipt Date: 20240829
  Transmission Date: 20241016
  Serious: Yes (Other)
  Sender: IRON THERAPEUTICS
  Company Number: None

PATIENT
  Age: 78 Year
  Sex: Female

DRUGS (1)
  1. FERRIC MALTOL [Suspect]
     Active Substance: FERRIC MALTOL
     Indication: Iron deficiency
     Dosage: 30 MG, BID CAPSULE HARD
     Route: 048
     Dates: start: 20240501, end: 20240627

REACTIONS (5)
  - Cough [Unknown]
  - Fatigue [Unknown]
  - Emotional distress [Unknown]
  - Initial insomnia [Unknown]
  - Gastrooesophageal reflux disease [Recovered/Resolved]

NARRATIVE: CASE EVENT DATE: 20240502
